FAERS Safety Report 6086641-7 (Version None)
Quarter: 2009Q1

REPORT INFORMATION
  Report Type: 
  Country: None (occurrence: None)
  Receive Date: 20090217
  Receipt Date: 20090202
  Transmission Date: 20090719
  Serious: Yes (Death)
  Sender: FDA-Public Use
  Company Number: CHPA2009US01669

PATIENT
  Age: 51 Year
  Sex: Male

DRUGS (9)
  1. ASPIRIN [Suspect]
     Dosage: ORAL
     Route: 048
  2. LISINOPRIL [Suspect]
     Dosage: ORAL
     Route: 048
  3. MONTELUKAS (MONTELUKAST) [Suspect]
     Dosage: ORAL
     Route: 048
  4. FLUOXETINE [Suspect]
     Dosage: ORAL
     Route: 048
  5. LAMOTRIGINE [Suspect]
     Dosage: ORAL
     Route: 048
  6. POTASSIUM (POTASSIUM) [Suspect]
     Dosage: ORAL
     Route: 048
  7. TRAMADOL HCL [Suspect]
     Dosage: ORAL
     Route: 048
  8. HYDROCHLOROTHIAZIDE [Suspect]
     Dosage: ORAL
     Route: 048
  9. CLONIDINE [Suspect]
     Dosage: ORAL
     Route: 048

REACTIONS (1)
  - COMPLETED SUICIDE [None]
